FAERS Safety Report 7806701-7 (Version None)
Quarter: 2011Q4

REPORT INFORMATION
  Report Type: 
  Country: None (occurrence: None)
  Receive Date: 20111011
  Receipt Date: 20110930
  Transmission Date: 20120403
  Serious: Yes (Other)
  Sender: FDA-Public Use
  Company Number: FR-JNJFOC-20111001311

PATIENT
  Age: 45 Year
  Sex: Female

DRUGS (2)
  1. REMICADE [Suspect]
     Indication: RHEUMATOID ARTHRITIS
     Route: 042
  2. SUN BATH PROTECTIVE TANNING LOTION [Concomitant]

REACTIONS (2)
  - PHOTOSENSITIVITY REACTION [None]
  - LUNG DISORDER [None]
